FAERS Safety Report 18559268 (Version 3)
Quarter: 2020Q4

REPORT INFORMATION
  Report Type: Spontaneous
  Country: US (occurrence: US)
  Receive Date: 20201130
  Receipt Date: 20201217
  Transmission Date: 20210114
  Serious: No
  Sender: FDA-Public Use
  Company Number: US-SA-2020SA337344

PATIENT

DRUGS (1)
  1. LANTUS [Suspect]
     Active Substance: INSULIN GLARGINE
     Dosage: UP TO 50 UNITS DAILY
     Route: 065

REACTIONS (2)
  - Suspected product quality issue [Unknown]
  - Blood glucose increased [Unknown]
